FAERS Safety Report 13916755 (Version 3)
Quarter: 2018Q2

REPORT INFORMATION
  Report Type: Spontaneous
  Country: JP (occurrence: JP)
  Receive Date: 20170829
  Receipt Date: 20180604
  Transmission Date: 20180711
  Serious: Yes (Death)
  Sender: FDA-Public Use
  Company Number: JP-ACTELION-A-CH2017-158592

PATIENT
  Age: 37 Year
  Sex: Female

DRUGS (12)
  1. UPTRAVI [Suspect]
     Active Substance: SELEXIPAG
     Dosage: 0.4 MG, QD
     Route: 048
     Dates: start: 20170520, end: 20170809
  2. FLOLAN [Concomitant]
     Active Substance: EPOPROSTENOL SODIUM
  3. PREDONINE [Concomitant]
     Active Substance: PREDNISOLONE
  4. UPTRAVI [Suspect]
     Active Substance: SELEXIPAG
     Indication: PULMONARY ARTERIAL HYPERTENSION
     Dosage: 0.4 MG, QD
     Route: 048
     Dates: start: 20170517, end: 20170519
  5. OXYGEN. [Concomitant]
     Active Substance: OXYGEN
  6. OPSUMIT [Suspect]
     Active Substance: MACITENTAN
     Indication: PULMONARY ARTERIAL HYPERTENSION
     Dosage: 10 MG, OD
     Route: 048
     Dates: start: 20161226, end: 20170620
  7. EPOPROSTENOL ACT [Concomitant]
     Active Substance: EPOPROSTENOL
     Indication: PULMONARY ARTERIAL HYPERTENSION
  8. ADCIRCA [Concomitant]
     Active Substance: TADALAFIL
  9. PARIET [Concomitant]
     Active Substance: RABEPRAZOLE SODIUM
  10. HERBESSER [Concomitant]
     Active Substance: DILTIAZEM HYDROCHLORIDE
  11. REVOLADE [Concomitant]
     Active Substance: ELTROMBOPAG
  12. SAMSCA [Concomitant]
     Active Substance: TOLVAPTAN

REACTIONS (5)
  - Respiratory failure [Fatal]
  - Ascites [Fatal]
  - Renal disorder [Recovering/Resolving]
  - Portal hypertension [Fatal]
  - General physical health deterioration [Fatal]

NARRATIVE: CASE EVENT DATE: 20170619
